FAERS Safety Report 9816243 (Version 4)
Quarter: 2014Q1

REPORT INFORMATION
  Report Type: Report from Study
  Country: CA (occurrence: CA)
  Receive Date: 20140114
  Receipt Date: 20140306
  Transmission Date: 20141002
  Serious: Yes (Death, Other)
  Sender: FDA-Public Use
  Company Number: PHHY2014CA003711

PATIENT
  Age: 55 Year
  Sex: Male

DRUGS (5)
  1. CLOZARIL [Suspect]
     Indication: SCHIZOPHRENIA
     Dates: start: 20040816
  2. CLOZARIL [Suspect]
     Dosage: 350 MG, BID
     Route: 048
  3. FLUPHENAZINE [Concomitant]
     Dosage: 0.25 ML, QW2
  4. OMEPRAZOLE [Concomitant]
     Dosage: 20 MG, QD
  5. PROCYCLIDINE [Concomitant]
     Dosage: 2.5 MG, TID

REACTIONS (5)
  - Death [Fatal]
  - Leukocytosis [Unknown]
  - Neutrophil count increased [Unknown]
  - Anaemia [Unknown]
  - Abdominal pain upper [Unknown]
